FAERS Safety Report 20232592 (Version 1)
Quarter: 2021Q4

REPORT INFORMATION
  Report Type: Spontaneous
  Country: US (occurrence: US)
  Receive Date: 20211227
  Receipt Date: 20211227
  Transmission Date: 20220303
  Serious: Yes (Other)
  Sender: FDA-Public Use
  Company Number: US-PFIZER INC-202101797331

PATIENT
  Age: 76 Year
  Sex: Male

DRUGS (1)
  1. VYNDAMAX [Suspect]
     Active Substance: TAFAMIDIS
     Dosage: 61 MG

REACTIONS (13)
  - Cardiac amyloidosis [Unknown]
  - Atrial fibrillation [Unknown]
  - Hypertrophic cardiomyopathy [Unknown]
  - Cardiac failure congestive [Unknown]
  - Acute myocardial infarction [Unknown]
  - Coronary artery disease [Unknown]
  - Hyperlipidaemia [Unknown]
  - Hypertension [Unknown]
  - Ventricular extrasystoles [Unknown]
  - Bundle branch block right [Unknown]
  - Ventricular hypertrophy [Unknown]
  - Dyspnoea [Unknown]
  - Sinus bradycardia [Unknown]
